FAERS Safety Report 4281943-9 (Version None)
Quarter: 2004Q1

REPORT INFORMATION
  Report Type: 
  Country: None (occurrence: None)
  Receive Date: 20040128
  Receipt Date: 20040119
  Transmission Date: 20041129
  Serious: Yes (Hospitalization)
  Sender: FDA-Public Use
  Company Number: 2004-01-0541

PATIENT
  Age: 73 Year
  Sex: Female
  Weight: 54 kg

DRUGS (4)
  1. CLARITIN [Suspect]
     Indication: PRURITUS
     Dosage: 10 MG ORAL
     Route: 048
     Dates: start: 20030501, end: 20031226
  2. NORVASC [Concomitant]
  3. FLUVASTATIN TABLETS [Concomitant]
  4. AMARYL [Concomitant]

REACTIONS (6)
  - ANTIMITOCHONDRIAL ANTIBODY POSITIVE [None]
  - ANTINUCLEAR ANTIBODY POSITIVE [None]
  - AUTOIMMUNE HEPATITIS [None]
  - BILIARY CIRRHOSIS PRIMARY [None]
  - HEPATITIS B [None]
  - LIVER DISORDER [None]
